FAERS Safety Report 18373329 (Version 1)
Quarter: 2020Q4

REPORT INFORMATION
  Report Type: Report from Study
  Country: US (occurrence: US)
  Receive Date: 20201012
  Receipt Date: 20201012
  Transmission Date: 20210114
  Serious: Yes (Hospitalization)
  Sender: FDA-Public Use
  Company Number: US-JNJFOC-20201012874

PATIENT
  Age: 59 Year
  Sex: Female
  Weight: 56.75 kg

DRUGS (2)
  1. LETAIRIS [Concomitant]
     Active Substance: AMBRISENTAN
  2. UPTRAVI [Suspect]
     Active Substance: SELEXIPAG
     Indication: PULMONARY ARTERIAL HYPERTENSION
     Route: 048
     Dates: start: 202009

REACTIONS (3)
  - Diarrhoea [Unknown]
  - Herpes zoster [Not Recovered/Not Resolved]
  - Abdominal pain [Unknown]
